FAERS Safety Report 8949783 (Version 1)
Quarter: 2012Q4

REPORT INFORMATION
  Report Type: Report from Study
  Country: US (occurrence: US)
  Receive Date: 20121206
  Receipt Date: 20121206
  Transmission Date: 20130627
  Serious: Yes (Hospitalization)
  Sender: FDA-Public Use
  Company Number: US-ASTELLAS-2012US011842

PATIENT

DRUGS (2)
  1. ERLOTINIB TABLET [Suspect]
     Indication: ASTROCYTOMA
     Dosage: 200 mg, UID/QD
     Route: 048
     Dates: start: 20080128, end: 20080404
  2. BEVACIZUMAB [Suspect]
     Dosage: 10 mg/kg, Q2W
     Route: 065
     Dates: start: 20080128, end: 20080404

REACTIONS (2)
  - Off label use [Unknown]
  - Osteonecrosis [Unknown]
